FAERS Safety Report 14323015 (Version 1)
Quarter: 2017Q4

REPORT INFORMATION
  Report Type: Spontaneous
  Country: IN (occurrence: IN)
  Receive Date: 20171226
  Receipt Date: 20171226
  Transmission Date: 20180321
  Serious: Yes (Hospitalization)
  Sender: FDA-Public Use
  Company Number: IN-INGENUS PHARMACEUTICALS NJ, LLC-ING201712-000719

PATIENT
  Age: 56 Year
  Sex: Male

DRUGS (3)
  1. CEFIXIME. [Concomitant]
     Active Substance: CEFIXIME
  2. CLOPIDOGREL [Suspect]
     Active Substance: CLOPIDOGREL BISULFATE
  3. CARISOPRODOL AND ASPIRIN [Suspect]
     Active Substance: ASPIRIN\CARISOPRODOL

REACTIONS (1)
  - Haemothorax [Recovered/Resolved]
